FAERS Safety Report 5032892-X (Version None)
Quarter: 2006Q2

REPORT INFORMATION
  Report Type: 
  Country: None (occurrence: None)
  Receive Date: 20060428
  Receipt Date: 20050913
  Transmission Date: 20061013
  Serious: Yes (Other)
  Sender: FDA-Public Use
  Company Number: 200511729BBE

PATIENT
  Age: 67 Year
  Sex: Female
  Weight: 88.4514 kg

DRUGS (13)
  1. GAMUNEX [Suspect]
     Indication: MYOSITIS
     Dosage: INTRAVENOUS
     Route: 042
     Dates: start: 20050908
  2. GAMUNEX [Suspect]
  3. GAMUNEX [Suspect]
  4. PREDNISONE [Concomitant]
  5. TIAZAC [Concomitant]
  6. NEXIUM [Concomitant]
  7. ACTONEL [Concomitant]
  8. CALCIUM GLUCONATE [Concomitant]
  9. VITAMIN D [Concomitant]
  10. MULTI-VITAMIN [Concomitant]
  11. SEREVENT [Concomitant]
  12. SPIRIVA [Concomitant]
  13. CELLCEPT [Concomitant]

REACTIONS (6)
  - DYSPNOEA [None]
  - ERYTHEMA [None]
  - FLUSHING [None]
  - HYPERSENSITIVITY [None]
  - PRURITUS [None]
  - URTICARIA [None]
